FAERS Safety Report 9168120 (Version 1)
Quarter: 2013Q1

REPORT INFORMATION
  Report Type: Spontaneous
  Country: US (occurrence: None)
  Receive Date: 20130313
  Receipt Date: 20130313
  Transmission Date: 20140127
  Serious: Yes (Death, Hospitalization, Other)
  Sender: FDA-Public Use
  Company Number: ADR-2013-00405

PATIENT
  Sex: Female

DRUGS (1)
  1. BACLOFEN INTRATHECAL [Suspect]

REACTIONS (13)
  - Escherichia infection [None]
  - Impaired healing [None]
  - Clostridial infection [None]
  - Meningitis [None]
  - Device related infection [None]
  - Spinal cord infection [None]
  - Convulsion [None]
  - Drug withdrawal syndrome [None]
  - Insomnia [None]
  - Aspiration [None]
  - Dysphagia [None]
  - Acute respiratory failure [None]
  - Wound infection [None]
